FAERS Safety Report 20595489 (Version 1)
Quarter: 2022Q1

REPORT INFORMATION
  Report Type: Spontaneous
  Country: CN (occurrence: CN)
  Receive Date: 20220315
  Receipt Date: 20220315
  Transmission Date: 20220423
  Serious: Yes (Hospitalization)
  Sender: FDA-Public Use
  Company Number: CN-BAYER-2022A034912

PATIENT
  Age: 83 Year
  Sex: Female
  Weight: 60 kg

DRUGS (2)
  1. XARELTO [Suspect]
     Active Substance: RIVAROXABAN
     Indication: Embolism venous
     Dosage: 10 MG, BID
     Route: 048
     Dates: start: 20200730, end: 20200816
  2. XARELTO [Suspect]
     Active Substance: RIVAROXABAN
     Indication: Embolism venous
     Dosage: 10 MG, BID
     Route: 048
     Dates: start: 20200819, end: 20200821

REACTIONS (10)
  - Lower gastrointestinal haemorrhage [Recovered/Resolved]
  - Lower gastrointestinal haemorrhage [Recovering/Resolving]
  - Coagulopathy [Recovering/Resolving]
  - Platelet count decreased [Recovering/Resolving]
  - Haemorrhage urinary tract [Recovering/Resolving]
  - Gingival bleeding [Recovering/Resolving]
  - Muscular weakness [Recovering/Resolving]
  - Haematochezia [Recovering/Resolving]
  - Underdose [Unknown]
  - Prescribed underdose [Unknown]

NARRATIVE: CASE EVENT DATE: 20200816
